FAERS Safety Report 4309827-8 (Version None)
Quarter: 2004Q1

REPORT INFORMATION
  Report Type: 
  Country: None (occurrence: None)
  Receive Date: 20040301
  Receipt Date: 20031204
  Transmission Date: 20041129
  Serious: Yes (Hospitalization)
  Sender: FDA-Public Use
  Company Number: 1497

PATIENT
  Age: 44 Year
  Sex: Female
  Weight: 81.6475 kg

DRUGS (16)
  1. AVINZA [Suspect]
     Indication: ABDOMINAL PAIN
     Dosage: 60 MG QD PO
     Route: 048
     Dates: start: 20020801, end: 20030709
  2. AVINZA [Suspect]
     Indication: PANCREATITIS CHRONIC
     Dosage: 60 MG QD PO
     Route: 048
     Dates: start: 20020801, end: 20030709
  3. AVINZA [Suspect]
     Indication: ABDOMINAL PAIN
     Dosage: 90 MG QD PO
     Route: 048
     Dates: start: 20030709
  4. AVINZA [Suspect]
     Indication: PANCREATITIS CHRONIC
     Dosage: 90 MG QD PO
     Route: 048
     Dates: start: 20030709
  5. AVINZA [Suspect]
     Indication: ABDOMINAL PAIN
     Dosage: 60 MG QD PO
     Route: 048
     Dates: start: 20030101, end: 20030101
  6. AVINZA [Suspect]
     Indication: PANCREATITIS CHRONIC
     Dosage: 60 MG QD PO
     Route: 048
     Dates: start: 20030101, end: 20030101
  7. AVINZA [Suspect]
     Indication: ABDOMINAL PAIN
     Dosage: 30 MG QD PO
     Route: 048
     Dates: start: 20030904, end: 20031002
  8. AVINZA [Suspect]
     Indication: PANCREATITIS CHRONIC
     Dosage: 30 MG QD PO
     Route: 048
     Dates: start: 20030904, end: 20031002
  9. AVINZA [Concomitant]
     Indication: ABDOMINAL PAIN
     Dosage: 90 MG QD PO
     Route: 048
     Dates: start: 20031003, end: 20031028
  10. AVINZA [Concomitant]
     Indication: PANCREATITIS CHRONIC
     Dosage: 90 MG QD PO
     Route: 048
     Dates: start: 20031003, end: 20031028
  11. CLONAZEPAM [Concomitant]
  12. ESCITALOPRAM OXALATE [Concomitant]
  13. EXTRADIOL [Concomitant]
  14. MORPHINE SULFATE [Concomitant]
  15. TOPIRMATE [Concomitant]
  16. TRAMODOL HYDROCHLORIDE/ACETAMINOPHEN [Concomitant]

REACTIONS (3)
  - NERVOUSNESS [None]
  - STUPOR [None]
  - THINKING ABNORMAL [None]
